FAERS Safety Report 25191831 (Version 2)
Quarter: 2025Q4

REPORT INFORMATION
  Report Type: Spontaneous
  Country: EU (occurrence: EU)
  Receive Date: 20250414
  Receipt Date: 20251015
  Transmission Date: 20260118
  Serious: Yes (Other)
  Sender: MYLAN
  Company Number: EU-HIKMA PHARMACEUTICALS-IT-H14001-25-02557

PATIENT
  Age: 4 Month
  Sex: Female

DRUGS (14)
  1. LEVETIRACETAM [Suspect]
     Active Substance: LEVETIRACETAM
     Indication: Epilepsy
     Dosage: UNK
  2. LEVETIRACETAM [Suspect]
     Active Substance: LEVETIRACETAM
     Indication: Cytogenetic abnormality
  3. TOPIRAMATE [Suspect]
     Active Substance: TOPIRAMATE
     Indication: Epilepsy
     Dosage: UNK
  4. TOPIRAMATE [Suspect]
     Active Substance: TOPIRAMATE
     Indication: Cytogenetic abnormality
  5. VALPROATE [Suspect]
     Active Substance: VALPROIC ACID
     Indication: Epilepsy
     Dosage: UNK
  6. VALPROATE [Suspect]
     Active Substance: VALPROIC ACID
     Indication: Cytogenetic abnormality
  7. RUFINAMIDE [Suspect]
     Active Substance: RUFINAMIDE
     Indication: Epilepsy
     Dosage: UNK
  8. RUFINAMIDE [Suspect]
     Active Substance: RUFINAMIDE
     Indication: Cytogenetic abnormality
  9. CLOBAZAM [Suspect]
     Active Substance: CLOBAZAM
     Indication: Epilepsy
     Dosage: UNK
  10. CLOBAZAM [Suspect]
     Active Substance: CLOBAZAM
     Indication: Cytogenetic abnormality
  11. VIGABATRIN [Suspect]
     Active Substance: VIGABATRIN
     Indication: Epilepsy
     Dosage: UNK
  12. VIGABATRIN [Suspect]
     Active Substance: VIGABATRIN
     Indication: Cytogenetic abnormality
  13. CANNABIDIOL [Suspect]
     Active Substance: CANNABIDIOL
     Indication: Epilepsy
     Dosage: 10 MILLIGRAM/KILOGRAM, QD (DRUG RE-STARTED AND DOSE WAS NOT CHANGED)
  14. CANNABIDIOL [Suspect]
     Active Substance: CANNABIDIOL
     Indication: Cytogenetic abnormality

REACTIONS (3)
  - Drug ineffective [Unknown]
  - Off label use [Unknown]
  - Treatment noncompliance [Unknown]
